FAERS Safety Report 11363665 (Version 1)
Quarter: 2015Q3

REPORT INFORMATION
  Report Type: Spontaneous
  Country: JP (occurrence: JP)
  Receive Date: 20150811
  Receipt Date: 20150811
  Transmission Date: 20151125
  Serious: Yes (Hospitalization, Other)
  Sender: FDA-Public Use
  Company Number: JP-AMGEN-JPNSP2015069758

PATIENT
  Age: 69 Year
  Sex: Female
  Weight: 33 kg

DRUGS (14)
  1. CALCIUM LEVOFOLINATE [Concomitant]
     Active Substance: LEVOLEUCOVORIN CALCIUM
     Indication: METASTASES TO LIVER
  2. ALOXI [Concomitant]
     Active Substance: PALONOSETRON HYDROCHLORIDE
     Dosage: 0.75 MG, Q2WEEKS
     Route: 041
     Dates: start: 20150409, end: 20150409
  3. 5-FU                               /00098801/ [Concomitant]
     Active Substance: FLUOROURACIL
     Indication: METASTASES TO LIVER
     Dosage: 1750 MG, Q2WEEKS
     Route: 041
     Dates: start: 20150326, end: 20150411
  4. CALCIUM LEVOFOLINATE [Concomitant]
     Active Substance: LEVOLEUCOVORIN CALCIUM
     Indication: COLON CANCER
     Dosage: 200 MG, Q2WEEKS
     Route: 041
     Dates: start: 20150326, end: 20150409
  5. ELPLAT [Concomitant]
     Active Substance: OXALIPLATIN
     Indication: COLON CANCER
     Dosage: 70 MG, Q2WEEKS
     Route: 041
     Dates: start: 20150326, end: 20150409
  6. ELPLAT [Concomitant]
     Active Substance: OXALIPLATIN
     Indication: METASTASES TO LIVER
  7. 5-FU                               /00098801/ [Concomitant]
     Active Substance: FLUOROURACIL
     Indication: COLON CANCER
     Dosage: 375 MG, Q2WEEKS
     Route: 040
     Dates: start: 20150326, end: 20150409
  8. DEXART [Concomitant]
     Active Substance: DEXAMETHASONE SODIUM PHOSPHATE
     Dosage: 6.6 MG, Q2WEEKS
     Route: 041
     Dates: start: 20150409, end: 20150409
  9. VECTIBIX [Suspect]
     Active Substance: PANITUMUMAB
     Indication: METASTASES TO LIVER
  10. ALBUMIN TANNATE [Concomitant]
     Active Substance: ALBUMIN BOVINE\TANNIC ACID
     Indication: DIARRHOEA
     Dosage: 1 G, TID
     Route: 048
     Dates: start: 20150331, end: 20150517
  11. LOPERAMIDE HYDROCHLORIDE. [Concomitant]
     Active Substance: LOPERAMIDE HYDROCHLORIDE
     Indication: DIARRHOEA
     Dosage: 2 MG, UNK
     Route: 048
     Dates: start: 20150301, end: 20150517
  12. CODEINE PHOSPHATE [Concomitant]
     Active Substance: CODEINE PHOSPHATE
     Indication: DIARRHOEA
     Dosage: 10 MG, UNK
     Route: 048
     Dates: start: 20150402, end: 20150517
  13. VECTIBIX [Suspect]
     Active Substance: PANITUMUMAB
     Indication: COLON CANCER
     Dosage: 150 MG, Q2WK
     Route: 041
     Dates: start: 20150409, end: 20150409
  14. CALCIUM LEVOFOLINATE [Concomitant]
     Active Substance: LEVOLEUCOVORIN CALCIUM
     Indication: COLON CANCER

REACTIONS (6)
  - Malaise [Recovered/Resolved]
  - Headache [Recovered/Resolved]
  - Decreased appetite [Unknown]
  - Dizziness [Unknown]
  - Bone marrow failure [Unknown]
  - Liver disorder [Unknown]

NARRATIVE: CASE EVENT DATE: 201504
